FAERS Safety Report 24137379 (Version 1)
Quarter: 2024Q3

REPORT INFORMATION
  Report Type: Spontaneous
  Country: US (occurrence: None)
  Receive Date: 20240725
  Receipt Date: 20240725
  Transmission Date: 20241017
  Serious: Yes (Hospitalization)
  Sender: Public
  Company Number: None

PATIENT
  Sex: Female

DRUGS (3)
  1. RINVOQ [Suspect]
     Active Substance: UPADACITINIB
     Indication: Spinal osteoarthritis
     Dosage: FREQUENCY : DAILY;?
     Route: 048
     Dates: start: 202404
  2. XOLAIR PFS [Concomitant]
     Active Substance: OMALIZUMAB
  3. TERIPARATIDE PEN (PRASCO) [Concomitant]

REACTIONS (2)
  - Clostridium difficile infection [None]
  - Therapy cessation [None]
